FAERS Safety Report 9157247 (Version 3)
Quarter: 2013Q2

REPORT INFORMATION
  Report Type: Spontaneous
  Country: JP (occurrence: JP)
  Receive Date: 20130312
  Receipt Date: 20130404
  Transmission Date: 20140414
  Serious: Yes (Hospitalization, Other)
  Sender: FDA-Public Use
  Company Number: JP-PFIZER INC-2013082228

PATIENT
  Age: 60 Year
  Sex: Female

DRUGS (29)
  1. CHAMPIX [Suspect]
     Indication: SMOKING CESSATION THERAPY
     Dosage: 0.5 MG, 1X/DAY
     Route: 048
     Dates: start: 20130105, end: 20130107
  2. CHAMPIX [Suspect]
     Dosage: 1 MG, TWICE DAILY
     Route: 048
     Dates: start: 20130108, end: 20130111
  3. CHAMPIX [Suspect]
     Dosage: 1MG, TWICE DAILY
     Route: 048
     Dates: start: 20130112, end: 20130212
  4. LEVOTOMIN [Concomitant]
     Indication: SCHIZOPHRENIA
     Dosage: 100 MG, DAILY
     Route: 048
     Dates: start: 2006
  5. RISPERDAL [Concomitant]
     Indication: SCHIZOPHRENIA
     Dosage: 2 MG, DAILY
     Route: 048
     Dates: start: 2006
  6. VEGETAMIN A [Concomitant]
     Indication: SCHIZOPHRENIA
     Dosage: 2 TABLET/DAY
     Route: 048
     Dates: start: 2006
  7. ZYPREXA [Concomitant]
     Indication: SCHIZOPHRENIA
     Dosage: 20 MG, DAILY
     Route: 048
     Dates: start: 2006
  8. SEROQUEL [Concomitant]
     Indication: SCHIZOPHRENIA
     Dosage: 600 MG, DAILY
     Route: 048
     Dates: start: 2006
  9. LAXOBERON [Concomitant]
     Indication: CONSTIPATION
     Dosage: 20 DROPS/DAY
     Route: 048
     Dates: start: 2006
  10. MAGMITT [Concomitant]
     Indication: CONSTIPATION
     Dosage: 1960 MG, DAILY
     Route: 048
     Dates: start: 2006
  11. DAI-KENCHU-TO [Concomitant]
     Indication: ABDOMINAL DISTENSION
     Dosage: 15 G, DAILY
     Route: 048
     Dates: start: 2006
  12. AROPHALM [Concomitant]
     Dosage: UNK
     Dates: start: 20121201
  13. ETIZOLAM [Concomitant]
     Dosage: UNK
     Dates: start: 20121208
  14. HIBERNA [Concomitant]
     Dosage: UNK
     Dates: start: 20121201
  15. PRAVASTAN [Concomitant]
     Dosage: UNK
     Dates: start: 20121201
  16. THYRADIN [Concomitant]
     Dosage: UNK
     Dates: start: 20121201
  17. TASMOLIN [Concomitant]
     Dosage: UNK
     Dates: start: 20121221
  18. VALERIN [Concomitant]
     Dosage: UNK
     Dates: start: 20121221
  19. L-MENTHOL [Concomitant]
     Dosage: UNK
     Dates: start: 20121201
  20. ALANTA SP [Concomitant]
     Dosage: UNK
     Dates: start: 20121201
  21. GLORIAMIN [Concomitant]
     Dosage: UNK
     Dates: start: 20121201
  22. COREMINAL [Concomitant]
     Dosage: UNK
     Dates: start: 20121201
  23. DIASTASE [Concomitant]
     Dosage: UNK
     Dates: start: 20121201
  24. MIYA BM [Concomitant]
     Dosage: UNK
     Dates: start: 20121201
  25. LANDSEN [Concomitant]
     Dosage: UNK
     Dates: start: 20121201
  26. DRIED YEAST [Concomitant]
     Dosage: UNK
     Dates: start: 20121201
  27. SODIUM BICARBONATE [Concomitant]
     Dosage: UNK
     Dates: start: 20121201
  28. SENNARIDE [Concomitant]
     Dosage: UNK
     Dates: start: 20121201
  29. KENEI G [Concomitant]
     Dosage: UNK
     Dates: start: 20121212

REACTIONS (3)
  - Ileus [Recovered/Resolved]
  - Constipation [Recovered/Resolved]
  - Vomiting [Recovered/Resolved]
